FAERS Safety Report 14735178 (Version 1)
Quarter: 2018Q2

REPORT INFORMATION
  Report Type: Spontaneous
  Country: FR (occurrence: FR)
  Receive Date: 20180409
  Receipt Date: 20180409
  Transmission Date: 20180711
  Serious: Yes (Hospitalization, Other)
  Sender: FDA-Public Use
  Company Number: FR-MYLANLABS-04P-056-0765047-00

PATIENT
  Age: 29 Year
  Sex: Female
  Weight: 50 kg

DRUGS (7)
  1. DI-ANTALVIC ADULTE [Suspect]
     Active Substance: ACETAMINOPHEN\PROPOXYPHENE HYDROCHLORIDE
     Indication: ILL-DEFINED DISORDER
     Dosage: DAILY DOSE: 2 DF.
     Route: 048
  2. OROMONE [Suspect]
     Active Substance: ESTRADIOL
     Indication: PRODUCT USED FOR UNKNOWN INDICATION
     Dosage: DAILY DOSE: 2 MG.
     Route: 048
     Dates: end: 20040615
  3. PENTASA [Suspect]
     Active Substance: MESALAMINE
     Indication: ILL-DEFINED DISORDER
     Dosage: DAILY DOSE: UNK. FREQUENCY:UNKNOWN
     Route: 048
     Dates: start: 20030215, end: 20040701
  4. DEBRIDAT [Suspect]
     Active Substance: TRIMEBUTINE MALEATE
     Indication: ILL-DEFINED DISORDER
     Dosage: DAILY DOSE: 600 MG.
     Route: 048
  5. ANDROCUR [Suspect]
     Active Substance: CYPROTERONE ACETATE
     Indication: PRODUCT USED FOR UNKNOWN INDICATION
     Dosage: DAILY DOSE: 50 MG. FREQUENCY:UNKNOWN
     Route: 048
     Dates: end: 20040615
  6. ANDROCUR [Suspect]
     Active Substance: CYPROTERONE ACETATE
     Indication: VIRILISM
     Dosage: 1 DF, QD
     Dates: start: 2012, end: 201711
  7. ESTRADIOL. [Suspect]
     Active Substance: ESTRADIOL
     Indication: PRODUCT USED FOR UNKNOWN INDICATION
     Dosage: 1 DF, QD
     Dates: start: 2012, end: 201711

REACTIONS (18)
  - Meningioma [Unknown]
  - Amnesia [Unknown]
  - Myalgia [None]
  - Peripheral swelling [None]
  - Arthritis [None]
  - Headache [Unknown]
  - Irritability [Unknown]
  - Systemic lupus erythematosus [Unknown]
  - Arthritis [Unknown]
  - Aphasia [Unknown]
  - Arthralgia [None]
  - Pain in extremity [None]
  - Synovitis [None]
  - Mood swings [Unknown]
  - Arthralgia [Unknown]
  - Frontotemporal dementia [Unknown]
  - Joint lock [None]
  - Musculoskeletal pain [None]

NARRATIVE: CASE EVENT DATE: 2004
